FAERS Safety Report 7656921-X (Version None)
Quarter: 2011Q3

REPORT INFORMATION
  Report Type: 
  Country: None (occurrence: None)
  Receive Date: 20110804
  Receipt Date: 20110801
  Transmission Date: 20111222
  Serious: Yes (Disabling)
  Sender: FDA-Public Use
  Company Number: AU-SANOFI-AVENTIS-2011SA048690

PATIENT
  Age: 51 Year
  Sex: Male
  Weight: 103.5 kg

DRUGS (1)
  1. LANTUS [Suspect]

REACTIONS (4)
  - MUSCULOSKELETAL PAIN [None]
  - DERMATITIS ALLERGIC [None]
  - HYPERHIDROSIS [None]
  - FEELING ABNORMAL [None]
